FAERS Safety Report 10157685 (Version 1)
Quarter: 2014Q2

REPORT INFORMATION
  Report Type: Report from Study
  Country: US (occurrence: US)
  Receive Date: 20140507
  Receipt Date: 20140507
  Transmission Date: 20141212
  Serious: No
  Sender: FDA-Public Use
  Company Number: PHEH2013US026849

PATIENT
  Age: 61 Year
  Sex: Female

DRUGS (9)
  1. TASIGNA [Suspect]
     Indication: ACUTE MYELOID LEUKAEMIA
     Dosage: 300 MG, BID
     Route: 048
     Dates: start: 20100721
  2. FLEXERIL [Interacting]
     Dosage: UNK UKN, UNK
  3. METFORMIN [Concomitant]
     Dosage: UNK UKN, UNK
  4. ZOCOR [Concomitant]
     Dosage: UNK UKN, UNK
  5. ZANTAC [Concomitant]
     Dosage: UNK UKN, UNK
  6. ALLOPURINOL [Concomitant]
     Dosage: UNK UKN, UNK
  7. CLARITIN [Concomitant]
     Dosage: UNK UKN, UNK
  8. MOTRIN [Concomitant]
     Dosage: UNK UKN, UNK
  9. PRAVASTATIN [Concomitant]
     Dosage: UNK UKN, UNK

REACTIONS (2)
  - Drug interaction [Unknown]
  - Electrocardiogram QT prolonged [Unknown]
